FAERS Safety Report 12415263 (Version 1)
Quarter: 2016Q2

REPORT INFORMATION
  Report Type: Other
  Country: TW (occurrence: TW)
  Receive Date: 20160530
  Receipt Date: 20160530
  Transmission Date: 20160815
  Serious: Yes (Other)
  Sender: FDA-Public Use
  Company Number: TW-JUBILANT GENERICS LIMITED-1052945

PATIENT
  Age: 85 Year
  Sex: Male

DRUGS (3)
  1. ESTAZOLAM. [Concomitant]
     Active Substance: ESTAZOLAM
  2. DULOXETINE. [Suspect]
     Active Substance: DULOXETINE
  3. BUPROPION. [Suspect]
     Active Substance: BUPROPION

REACTIONS (2)
  - Delirium [Recovered/Resolved]
  - Drug interaction [Recovered/Resolved]

NARRATIVE: CASE EVENT DATE: 20160516
